FAERS Safety Report 22015288 (Version 1)
Quarter: 2023Q1

REPORT INFORMATION
  Report Type: Spontaneous
  Country: AR (occurrence: AR)
  Receive Date: 20230221
  Receipt Date: 20230221
  Transmission Date: 20230418
  Serious: Yes (Other)
  Sender: FDA-Public Use
  Company Number: AR-002147023-NVSC2023AR036495

PATIENT
  Sex: Female

DRUGS (1)
  1. EVEROLIMUS [Suspect]
     Active Substance: EVEROLIMUS
     Indication: Breast cancer metastatic
     Dosage: 25 MG, QD
     Route: 065
     Dates: start: 20221230

REACTIONS (4)
  - Stomatitis [Unknown]
  - Acarodermatitis [Unknown]
  - Oral mucosal blistering [Unknown]
  - Acne [Unknown]

NARRATIVE: CASE EVENT DATE: 20230101
